FAERS Safety Report 5203513-8 (Version None)
Quarter: 2007Q1

REPORT INFORMATION
  Report Type: 
  Country: None (occurrence: None)
  Receive Date: 20070105
  Receipt Date: 20061222
  Transmission Date: 20070707
  Serious: Yes (Hospitalization)
  Sender: FDA-Public Use
  Company Number: 2007P1000001

PATIENT
  Age: 76 Year
  Sex: Male

DRUGS (1)
  1. NICARDIPINE HYDROCHLORIDE [Suspect]
     Indication: HYPERTENSION
     Dosage: 20 MG; 2 PO QD; PO
     Route: 048
     Dates: start: 19980417, end: 20061013

REACTIONS (4)
  - EOSINOPHIL COUNT INCREASED [None]
  - HYPERTENSION [None]
  - SCRATCH [None]
  - TOXIC SKIN ERUPTION [None]
